FAERS Safety Report 24574729 (Version 1)
Quarter: 2024Q4

REPORT INFORMATION
  Report Type: Spontaneous
  Country: CA (occurrence: CA)
  Receive Date: 20241104
  Receipt Date: 20241104
  Transmission Date: 20250114
  Serious: Yes (Hospitalization, Other)
  Sender: STRIDES
  Company Number: CA-STRIDES ARCOLAB LIMITED-2024SP014071

PATIENT
  Age: 58 Year
  Sex: Male

DRUGS (14)
  1. ETOPOSIDE [Suspect]
     Active Substance: ETOPOSIDE
     Indication: Small cell lung cancer extensive stage
     Dosage: 350 MILLIGRAM, CYCLICAL (ON DAY 1-3)
     Route: 048
     Dates: start: 201911
  2. ETOPOSIDE [Suspect]
     Active Substance: ETOPOSIDE
     Dosage: 200 MILLIGRAM, CYCLICAL (ON DAY 1-3)
     Route: 048
  3. ETOPOSIDE [Suspect]
     Active Substance: ETOPOSIDE
     Dosage: 143 MILLIGRAM, CYCLICAL (ON DAY 1-3)
     Route: 048
     Dates: start: 202010, end: 202101
  4. ETOPOSIDE [Suspect]
     Active Substance: ETOPOSIDE
     Dosage: UNK, CYCLICAL (DOSE REDUCED)
     Route: 065
     Dates: start: 2021
  5. CARBOPLATIN [Suspect]
     Active Substance: CARBOPLATIN
     Indication: Small cell lung cancer extensive stage
     Dosage: 681 MILLIGRAM, CYCLICAL (ON DAY 1)
     Route: 042
     Dates: start: 201911
  6. CARBOPLATIN [Suspect]
     Active Substance: CARBOPLATIN
     Dosage: 563 MILLIGRAM, CYCLICAL (ON DAY 1)
     Route: 042
  7. CARBOPLATIN [Suspect]
     Active Substance: CARBOPLATIN
     Dosage: 225 MILLIGRAM, CYCLICAL (ON DAY 1)
     Route: 042
     Dates: start: 202010, end: 202101
  8. CARBOPLATIN [Suspect]
     Active Substance: CARBOPLATIN
     Dosage: UNK, CYCLICAL (DOSE REDUCED)
     Route: 065
  9. ATEZOLIZUMAB [Suspect]
     Active Substance: ATEZOLIZUMAB
     Indication: Small cell lung cancer extensive stage
     Dosage: 1200 MILLIGRAM, CYCLICAL (ON DAY1 EVERY 21 DAYS)
     Route: 042
     Dates: start: 201911
  10. ATEZOLIZUMAB [Suspect]
     Active Substance: ATEZOLIZUMAB
     Dosage: 1200 MILLIGRAM, CYCLICAL (ON DAY1 EVERY 21 DAYS)
     Route: 042
     Dates: start: 202010, end: 202101
  11. ATEZOLIZUMAB [Suspect]
     Active Substance: ATEZOLIZUMAB
     Dosage: UNK, CYCLICAL (DOSE REDUCED)
     Route: 065
     Dates: start: 2021
  12. ATEZOLIZUMAB [Suspect]
     Active Substance: ATEZOLIZUMAB
     Dosage: UNK, CYCLICAL (EVERY 3-4 MONTHS)
     Route: 042
     Dates: start: 2021, end: 202306
  13. ATEZOLIZUMAB [Suspect]
     Active Substance: ATEZOLIZUMAB
     Dosage: UNK, CYCLICAL
     Route: 042
     Dates: start: 202308
  14. ZOLEDRONIC ACID [Suspect]
     Active Substance: ZOLEDRONIC ACID
     Indication: Hypercalcaemia
     Dosage: UNK
     Route: 042
     Dates: start: 202002, end: 202110

REACTIONS (5)
  - Dysgeusia [Unknown]
  - Febrile neutropenia [Unknown]
  - Decreased appetite [Unknown]
  - Anaemia [Unknown]
  - Fatigue [Unknown]

NARRATIVE: CASE EVENT DATE: 20210101
